FAERS Safety Report 16528197 (Version 1)
Quarter: 2019Q3

REPORT INFORMATION
  Report Type: Spontaneous
  Country: US (occurrence: US)
  Receive Date: 20190704
  Receipt Date: 20190704
  Transmission Date: 20191004
  Serious: No
  Sender: FDA-Public Use
  Company Number: US-GW PHARMA-201903USGW0785

PATIENT

DRUGS (1)
  1. EPIDIOLEX [Suspect]
     Active Substance: CANNABIDIOL
     Indication: EPILEPSY
     Dosage: 300 MILLIGRAM, BID
     Route: 048

REACTIONS (4)
  - Nasal congestion [Unknown]
  - Drug ineffective [Unknown]
  - Rhinorrhoea [Unknown]
  - Seizure [Unknown]

NARRATIVE: CASE EVENT DATE: 20190325
